FAERS Safety Report 23169696 (Version 1)
Quarter: 2023Q4

REPORT INFORMATION
  Report Type: Report from Study
  Country: US (occurrence: US)
  Receive Date: 20231110
  Receipt Date: 20231110
  Transmission Date: 20240110
  Serious: Yes (Life-Threatening)
  Sender: FDA-Public Use
  Company Number: US-JNJFOC-20231113961

PATIENT
  Sex: Female

DRUGS (6)
  1. SPRAVATO [Suspect]
     Active Substance: ESKETAMINE
     Indication: Depression
     Dosage: ^56 MG, 8 TOTAL DOSES^
     Dates: start: 20210316, end: 20210429
  2. SPRAVATO [Suspect]
     Active Substance: ESKETAMINE
     Dosage: ^84 MG, 152 TOTAL DOSES^
     Dates: start: 20210504, end: 20230711
  3. SPRAVATO [Suspect]
     Active Substance: ESKETAMINE
     Dosage: UNSPECIFIED DOSE
     Dates: start: 20230713, end: 20230713
  4. SPRAVATO [Suspect]
     Active Substance: ESKETAMINE
     Dosage: ^84 MG, 6 TOTAL DOSES^
     Dates: start: 20230718, end: 20230807
  5. SPRAVATO [Suspect]
     Active Substance: ESKETAMINE
     Dosage: UNSPECIFIED DOSE
     Dates: start: 20230810, end: 20230810
  6. SPRAVATO [Suspect]
     Active Substance: ESKETAMINE
     Dosage: ^84 MG, 19 TOTAL DOSES^
     Dates: start: 20230814, end: 20231030

REACTIONS (2)
  - Suicide attempt [Recovered/Resolved]
  - Depression [Recovered/Resolved]
